FAERS Safety Report 7080943-3 (Version None)
Quarter: 2010Q4

REPORT INFORMATION
  Report Type: 
  Country: None (occurrence: None)
  Receive Date: 20101103
  Receipt Date: 20101008
  Transmission Date: 20110411
  Serious: No
  Sender: FDA-Public Use
  Company Number: US-TYCO HEALTHCARE/MALLINCKRODT-T201001990

PATIENT
  Sex: Male

DRUGS (4)
  1. FENTANYL CITRATE [Suspect]
     Indication: PAIN
     Dosage: UNK
  2. DILAUDID [Concomitant]
     Indication: PAIN
     Dosage: 2 MG, TID
  3. DURAGESIC-100 [Concomitant]
     Indication: PAIN
     Dosage: Q72 HOURS
     Route: 062
  4. FLEXERIL [Concomitant]
     Indication: PAIN
     Dosage: 10 MG, 3 AT NIGHT
     Route: 048

REACTIONS (2)
  - NAUSEA [None]
  - PRODUCT TASTE ABNORMAL [None]
